FAERS Safety Report 8969664 (Version 2)
Quarter: 2014Q3

REPORT INFORMATION
  Report Type: Spontaneous
  Country: US (occurrence: US)
  Receive Date: 20121218
  Receipt Date: 20140908
  Transmission Date: 20150326
  Serious: Yes (Other)
  Sender: FDA-Public Use
  Company Number: US-BRISTOL-MYERS SQUIBB COMPANY-16234270

PATIENT
  Age: 63 Year
  Sex: Female
  Weight: 64 kg

DRUGS (7)
  1. CYMBALTA [Concomitant]
     Active Substance: DULOXETINE HYDROCHLORIDE
  2. VALACICLOVIR [Concomitant]
     Active Substance: VALACYCLOVIR HYDROCHLORIDE
  3. ABILIFY [Suspect]
     Active Substance: ARIPIPRAZOLE
     Indication: ANGER
     Dosage: 1DF=1/2 TABS OF 2MG?FEB2015
     Route: 048
  4. LEXAPRO [Concomitant]
     Active Substance: ESCITALOPRAM OXALATE
     Indication: DEPRESSION
  5. ARMOUR THYROID [Concomitant]
     Active Substance: THYROID, PORCINE\THYROID, UNSPECIFIED
  6. DICYCLOVERINE HCL [Concomitant]
  7. DETROL LA [Concomitant]
     Active Substance: TOLTERODINE TARTRATE

REACTIONS (5)
  - Dyskinesia [Unknown]
  - Amnesia [Unknown]
  - Weight increased [Unknown]
  - Salivary hypersecretion [Unknown]
  - Abdominal distension [Unknown]
